FAERS Safety Report 9630986 (Version 2)
Quarter: 2013Q4

REPORT INFORMATION
  Report Type: Report from Study
  Country: US (occurrence: US)
  Receive Date: 20131018
  Receipt Date: 20131018
  Transmission Date: 20140711
  Serious: Yes (Other)
  Sender: FDA-Public Use
  Company Number: US-PFIZER INC-2011233816

PATIENT
  Age: 46 Year
  Sex: Female
  Weight: 86.17 kg

DRUGS (9)
  1. LYRICA [Suspect]
     Indication: FIBROMYALGIA
     Dosage: 50 MG, 2X/DAY
     Route: 048
     Dates: start: 2003
  2. LYRICA [Suspect]
     Indication: NEUROPATHY PERIPHERAL
     Dosage: 75 MG, 3X/DAY
     Route: 048
     Dates: start: 200712, end: 2009
  3. LYRICA [Suspect]
     Dosage: 150 MG, 3X/DAY
     Route: 048
     Dates: start: 2009
  4. LYRICA [Suspect]
     Dosage: 150 MG, 3X/DAY
     Route: 048
     Dates: start: 2003, end: 201212
  5. PERCOCET [Concomitant]
     Indication: PAIN
     Dosage: UNK
  6. DURAGESIC [Concomitant]
     Dosage: UNK
  7. LEVOTHYROXINE [Concomitant]
     Indication: THYROID DISORDER
     Dosage: 75 UG, DAILY
  8. LEVOTHYROXINE [Concomitant]
     Indication: HYPOTHYROIDISM
  9. ESTROGEN NOS [Concomitant]
     Indication: HORMONE REPLACEMENT THERAPY
     Dosage: 1 MG, DAILY

REACTIONS (17)
  - Fall [Unknown]
  - Limb injury [Unknown]
  - Back injury [Unknown]
  - Neck injury [Unknown]
  - Neuropathy peripheral [Unknown]
  - Sensory loss [Unknown]
  - Spinal fracture [Unknown]
  - Withdrawal syndrome [Not Recovered/Not Resolved]
  - Insomnia [Not Recovered/Not Resolved]
  - Hyperhidrosis [Not Recovered/Not Resolved]
  - Disturbance in attention [Recovered/Resolved]
  - Hypoaesthesia [Unknown]
  - Malaise [Unknown]
  - Eating disorder [Unknown]
  - Pain of skin [Not Recovered/Not Resolved]
  - Neuralgia [Not Recovered/Not Resolved]
  - Decreased appetite [Not Recovered/Not Resolved]
